FAERS Safety Report 6765106-0 (Version None)
Quarter: 2010Q2

REPORT INFORMATION
  Report Type: 
  Country: None (occurrence: None)
  Receive Date: 20100609
  Receipt Date: 20100609
  Transmission Date: 20101027
  Serious: Yes (Other)
  Sender: FDA-Public Use
  Company Number: None

PATIENT
  Age: 59 Year
  Sex: Female
  Weight: 56.8 kg

DRUGS (2)
  1. DICLOFENAC SODIUM [Suspect]
     Indication: MIGRAINE
     Dosage: 1 DROP BID OU TWICE A DAY EACH EYE
     Route: 047
     Dates: start: 20100427, end: 20100530
  2. PATADAY [Suspect]
     Indication: EYE PAIN
     Dosage: 1 DROP BID OU TWICE A DAY EACH EYE
     Route: 047
     Dates: start: 20100427, end: 20100530

REACTIONS (1)
  - NO THERAPEUTIC RESPONSE [None]
